FAERS Safety Report 16903783 (Version 1)
Quarter: 2019Q4

REPORT INFORMATION
  Report Type: Spontaneous
  Country: US (occurrence: US)
  Receive Date: 20191009
  Receipt Date: 20191009
  Transmission Date: 20200122
  Serious: No
  Sender: FDA-Public Use
  Company Number: None

PATIENT
  Age: 40 Year
  Sex: Male
  Weight: 99.45 kg

DRUGS (8)
  1. CYCLOBENZAPRINE HCL [Concomitant]
     Active Substance: CYCLOBENZAPRINE HYDROCHLORIDE
  2. GABAPENTIN. [Concomitant]
     Active Substance: GABAPENTIN
  3. OCYCODONE HCL [Concomitant]
  4. MEKINIST [Suspect]
     Active Substance: TRAMETINIB DIMETHYL SULFOXIDE
     Indication: NEOPLASM MALIGNANT
     Route: 048
  5. CELECOXIB. [Concomitant]
     Active Substance: CELECOXIB
  6. TRAZODONE HYDROCHLORIDE. [Concomitant]
     Active Substance: TRAZODONE HYDROCHLORIDE
  7. MULTIVITAMIN ADULT [Concomitant]
  8. TAFINLAR [Concomitant]
     Active Substance: DABRAFENIB MESYLATE

REACTIONS (1)
  - Pyrexia [None]
